FAERS Safety Report 24443194 (Version 1)
Quarter: 2024Q4

REPORT INFORMATION
  Report Type: Spontaneous
  Country: US (occurrence: US)
  Receive Date: 20241016
  Receipt Date: 20241016
  Transmission Date: 20250115
  Serious: Yes (Death, Hospitalization, Other)
  Sender: ZYDUS PHARM
  Company Number: US-CADILA HEALTHCARE LIMITED-US-ZYDUS-113136

PATIENT

DRUGS (3)
  1. LEVETIRACETAM [Interacting]
     Active Substance: LEVETIRACETAM
     Indication: Seizure
     Dosage: UNK
     Route: 065
  2. METHOTREXATE [Interacting]
     Active Substance: METHOTREXATE
     Indication: Psoriatic arthropathy
     Dosage: 2.5 MILLIGRAM, QD, IX DAYS PER WEEK SINCE AT LEAST A FEW MONTHS
     Route: 065
  3. LEUCOVORIN [Suspect]
     Active Substance: LEUCOVORIN\LEUCOVORIN CALCIUM
     Indication: Drug toxicity prophylaxis
     Dosage: UNK
     Route: 065

REACTIONS (11)
  - Drug interaction [Unknown]
  - Toxicity to various agents [Fatal]
  - Stomatitis [Unknown]
  - Rash erythematous [Unknown]
  - Pustule [Unknown]
  - Acute kidney injury [Fatal]
  - Hepatic function abnormal [Fatal]
  - Skin atrophy [Unknown]
  - Necrosis [Unknown]
  - Medication error [Unknown]
  - Drug ineffective [Unknown]
